FAERS Safety Report 6836623-X (Version None)
Quarter: 2010Q3

REPORT INFORMATION
  Report Type: 
  Country: None (occurrence: None)
  Receive Date: 20100713
  Receipt Date: 20100707
  Transmission Date: 20110219
  Serious: Yes (Hospitalization)
  Sender: FDA-Public Use
  Company Number: PHHY2010IT26317

PATIENT
  Sex: Female

DRUGS (3)
  1. VOLTAREN [Suspect]
     Dosage: 75 MG, 1 POSOLOGIC UNIT
     Route: 048
     Dates: start: 20100408, end: 20100415
  2. LORAZEPAM [Concomitant]
     Dosage: 2.5 MG,1.5 POSOLOGIC UNIT
     Route: 048
  3. ENAPREN [Concomitant]
     Dosage: 20 MG, 1 POSOLOGIC UNIT
     Route: 048

REACTIONS (3)
  - FALL [None]
  - HAEMATEMESIS [None]
  - VERTIGO [None]
